FAERS Safety Report 23033000 (Version 1)
Quarter: 2023Q4

REPORT INFORMATION
  Report Type: Spontaneous
  Country: CN (occurrence: CN)
  Receive Date: 20231005
  Receipt Date: 20231005
  Transmission Date: 20240110
  Serious: Yes (Other)
  Sender: FDA-Public Use
  Company Number: CN-Eisai Medical Research-EC-2023-149957

PATIENT
  Age: 39 Year
  Sex: Female

DRUGS (4)
  1. RABEPRAZOLE SODIUM [Suspect]
     Active Substance: RABEPRAZOLE SODIUM
     Indication: Helicobacter infection
     Dosage: FREQUENCY UNKNOWN
     Route: 048
     Dates: start: 20230912, end: 20230922
  2. CLARITHROMYCIN [Suspect]
     Active Substance: CLARITHROMYCIN
     Indication: Helicobacter infection
     Dosage: FREQUENCY UNKNOWN
     Route: 048
     Dates: start: 20230912, end: 20230922
  3. BISMUTH SUBCITRATE [Suspect]
     Active Substance: BISMUTH SUBCITRATE
     Indication: Helicobacter infection
     Dosage: FREQUENCY UNKNOWN
     Route: 048
     Dates: start: 20230912, end: 20230922
  4. AMOXICILLIN [Suspect]
     Active Substance: AMOXICILLIN
     Indication: Helicobacter infection
     Dosage: FREQUENCY UNKNOWN
     Route: 048
     Dates: start: 20230912, end: 20230922

REACTIONS (1)
  - Dermatitis allergic [Recovering/Resolving]

NARRATIVE: CASE EVENT DATE: 20230922
